FAERS Safety Report 10682031 (Version 2)
Quarter: 2015Q2

REPORT INFORMATION
  Report Type: Spontaneous
  Country: US (occurrence: US)
  Receive Date: 20141230
  Receipt Date: 20150421
  Transmission Date: 20150821
  Serious: No
  Sender: FDA-Public Use
  Company Number: US-PFIZER INC-2014350077

PATIENT
  Age: 66 Year
  Sex: Female
  Weight: 59 kg

DRUGS (3)
  1. CHLORTHALIDONE. [Suspect]
     Active Substance: CHLORTHALIDONE
     Indication: BLOOD PRESSURE ABNORMAL
     Dosage: UNK, 1X/DAY (25 MG, HALF A PILL ONCE A DAY)
  2. HYDROCDONE/ACETAMINOPHEN [Suspect]
     Active Substance: ACETAMINOPHEN\HYDROCODONE
     Indication: NECK PAIN
     Dosage: UNK, (7.5/325), EVERY SIX HOURS AS NEEDED)
  3. LEVOXYL [Suspect]
     Active Substance: LEVOTHYROXINE SODIUM
     Indication: THYROID DISORDER
     Dosage: 75 ?G, 1X/DAY (IN MORNING)

REACTIONS (4)
  - Abnormal faeces [Not Recovered/Not Resolved]
  - Viral infection [Unknown]
  - Infection [Unknown]
  - Tooth infection [Unknown]

NARRATIVE: CASE EVENT DATE: 2013
